FAERS Safety Report 17204972 (Version 4)
Quarter: 2020Q3

REPORT INFORMATION
  Report Type: Spontaneous
  Country: US (occurrence: US)
  Receive Date: 20191227
  Receipt Date: 20200729
  Transmission Date: 20201102
  Serious: Yes (Hospitalization, Other)
  Sender: FDA-Public Use
  Company Number: US-B.I. PHARMACEUTICALS,INC./RIDGEFIELD-2019-US-121661

PATIENT
  Age: 84 Year
  Sex: Male

DRUGS (1)
  1. PRADAXA [Suspect]
     Active Substance: DABIGATRAN ETEXILATE MESYLATE
     Indication: ATRIAL FIBRILLATION
     Dosage: BID ONE 150MG CAPSULE
     Route: 048
     Dates: start: 2010

REACTIONS (12)
  - Abdominal distension [Unknown]
  - Hypoacusis [Unknown]
  - Haemorrhage [Recovered/Resolved]
  - Rash [Not Recovered/Not Resolved]
  - Haemorrhage [Unknown]
  - Gastric haemorrhage [Unknown]
  - Haemorrhage [Recovered/Resolved]
  - Abdominal pain upper [Unknown]
  - Blood urine present [Recovered/Resolved]
  - Penile haemorrhage [Unknown]
  - Memory impairment [Unknown]
  - Contusion [Unknown]

NARRATIVE: CASE EVENT DATE: 201909
